FAERS Safety Report 12377272 (Version 1)
Quarter: 2016Q2

REPORT INFORMATION
  Report Type: Spontaneous
  Country: US (occurrence: US)
  Receive Date: 20160517
  Receipt Date: 20160517
  Transmission Date: 20160815
  Serious: No
  Sender: FDA-Public Use
  Company Number: US-MALLINCKRODT-T201505341

PATIENT
  Age: 29 Year
  Sex: Female
  Weight: 91 kg

DRUGS (5)
  1. H.P. ACTHAR [Suspect]
     Active Substance: CORTICOTROPIN
     Indication: THROMBOCYTOPENIA
     Dosage: 80 UNITS TWICE WKLY FOR 2 WKS THEN RECHECK
     Route: 058
     Dates: start: 20151110
  2. PRENATAL [Concomitant]
     Active Substance: VITAMINS
  3. BENLYSTA [Concomitant]
     Active Substance: BELIMUMAB
     Dosage: INFUSION EVERY 4 WEEKS
  4. PLAQUENIL [Concomitant]
     Active Substance: HYDROXYCHLOROQUINE SULFATE
  5. H.P. ACTHAR [Suspect]
     Active Substance: CORTICOTROPIN
     Indication: SYSTEMIC LUPUS ERYTHEMATOSUS

REACTIONS (9)
  - Injection site irritation [Recovered/Resolved]
  - Injection site mass [Not Recovered/Not Resolved]
  - Injection site warmth [Not Recovered/Not Resolved]
  - Injection site induration [Not Recovered/Not Resolved]
  - Glucose tolerance impaired [Unknown]
  - Rash [Not Recovered/Not Resolved]
  - Drug ineffective [Not Recovered/Not Resolved]
  - Product physical consistency issue [Unknown]
  - Exposure during pregnancy [Not Recovered/Not Resolved]

NARRATIVE: CASE EVENT DATE: 20151110
